FAERS Safety Report 21242562 (Version 1)
Quarter: 2022Q3

REPORT INFORMATION
  Report Type: Spontaneous
  Country: US (occurrence: None)
  Receive Date: 20220822
  Receipt Date: 20220822
  Transmission Date: 20221027
  Serious: No
  Sender: FDA-Public Use
  Company Number: None

PATIENT
  Age: 91 Year
  Sex: Female
  Weight: 46.27 kg

DRUGS (11)
  1. IMATINIB [Suspect]
     Active Substance: IMATINIB
     Indication: Chronic myeloid leukaemia
     Dosage: FREQUENCY : DAILY;?
     Route: 048
     Dates: start: 202011
  2. ALLOPURINOL [Concomitant]
  3. ASPIRIN [Concomitant]
     Active Substance: ASPIRIN
  4. CALCIUM CARBONATE [Concomitant]
     Active Substance: CALCIUM CARBONATE
  5. DULOXETINE [Concomitant]
     Active Substance: DULOXETINE
  6. LAETALOL [Concomitant]
  7. LASIX [Concomitant]
     Active Substance: FUROSEMIDE
  8. LEVOTHYROXINE [Concomitant]
     Active Substance: LEVOTHYROXINE
  9. MELOXICAM [Concomitant]
  10. REMDESIVIR [Concomitant]
     Active Substance: REMDESIVIR
  11. TYLENOL [Concomitant]

REACTIONS (4)
  - Fall [None]
  - Decreased appetite [None]
  - Asthenia [None]
  - SARS-CoV-2 test positive [None]
